FAERS Safety Report 7153263-6 (Version None)
Quarter: 2010Q4

REPORT INFORMATION
  Report Type: 
  Country: None (occurrence: None)
  Receive Date: 20101213
  Receipt Date: 20101202
  Transmission Date: 20110411
  Serious: Yes (Death, Other)
  Sender: FDA-Public Use
  Company Number: AT-ROCHE-745666

PATIENT
  Sex: Female
  Weight: 91 kg

DRUGS (3)
  1. TRASTUZUMAB [Suspect]
     Route: 065
  2. VENDAL [Concomitant]
     Indication: PAIN
     Dosage: FORM:PERMANENT INFUSION
     Route: 042
     Dates: start: 20080504, end: 20080506
  3. PANTOLOC [Concomitant]
     Indication: PROPHYLAXIS
     Route: 042
     Dates: start: 20080505, end: 20080506

REACTIONS (4)
  - JUGULAR VEIN THROMBOSIS [None]
  - MULTI-ORGAN FAILURE [None]
  - PLEURAL EFFUSION [None]
  - VENA CAVA THROMBOSIS [None]
